FAERS Safety Report 5702634-0 (Version None)
Quarter: 2008Q2

REPORT INFORMATION
  Report Type: 
  Country: None (occurrence: None)
  Receive Date: 20080410
  Receipt Date: 20080410
  Transmission Date: 20081010
  Serious: Yes (Disabling)
  Sender: FDA-Public Use
  Company Number: None

PATIENT
  Age: 18 Year
  Sex: Female
  Weight: 35 kg

DRUGS (2)
  1. BOTOX [Suspect]
     Indication: CEREBRAL PALSY
     Dosage: 15 UNITS INTO EACH PAROTID ONCE
     Dates: start: 20071030, end: 20071030
  2. BOTOX [Suspect]
     Indication: CEREBRAL PALSY
     Dosage: 35 UNITS INTO EACH SUBMANDIBULAR ONCE

REACTIONS (1)
  - DYSPHAGIA [None]
